FAERS Safety Report 5326712-3 (Version None)
Quarter: 2007Q2

REPORT INFORMATION
  Report Type: 
  Country: None (occurrence: None)
  Receive Date: 20070516
  Receipt Date: 20070514
  Transmission Date: 20071010
  Serious: Yes (Life-Threatening, Other)
  Sender: FDA-Public Use
  Company Number: DE-BOEHRINGER INGELHEIM PHARMACEUTICALS, INC.-2007-DE-02882DE

PATIENT
  Sex: Female
  Weight: 80 kg

DRUGS (11)
  1. SIFROL [Suspect]
     Dosage: UNKNOWN AMOUNT
     Route: 048
  2. AMANTADIN (NON-BI DRUG) [Suspect]
     Dosage: UNKNOWN AMOUNT
     Route: 048
  3. ARCOXIA (NON-BI DRUG) [Suspect]
     Dosage: UNKNOWN AMOUNT
     Route: 048
  4. ASPIRIN [Suspect]
     Dosage: UNKNOWN AMOUNT
     Route: 048
  5. ATACAND [Suspect]
     Dosage: UNKNOWN AMOUNT
     Route: 048
  6. BELOC ZOK (NON-BI DRUG) [Suspect]
     Dosage: UNKNOWN AMOUNT
     Route: 048
  7. CIPRAMIL (NON-BI DRUG) [Suspect]
     Dosage: UNKNOWN AMOUNT
     Route: 048
  8. DOXEPIN (NON-BI DRUG) [Suspect]
     Dosage: UNKNOWN AMOUNT
     Route: 048
  9. LEVODOPA (NON-BI DRUG) [Suspect]
     Dosage: UNKNOWN AMOUNT (LEVODOPA 100MG/CARBIDOPA 25MG)
     Route: 048
  10. NOVALGIN (NON-BI DRUG) [Suspect]
     Dosage: UNKNOWN AMOUNT
     Route: 048
  11. RIVOTRIL (NON-BI DRUG) [Suspect]
     Dosage: UNKNOWN AMOUNT
     Route: 048

REACTIONS (8)
  - COMA [None]
  - CONVULSION [None]
  - DRUG ABUSER [None]
  - DRY SKIN [None]
  - MIOSIS [None]
  - PNEUMONIA ASPIRATION [None]
  - RESPIRATORY FAILURE [None]
  - SUICIDE ATTEMPT [None]
